FAERS Safety Report 19037807 (Version 1)
Quarter: 2021Q1

REPORT INFORMATION
  Report Type: Spontaneous
  Country: US (occurrence: US)
  Receive Date: 20210322
  Receipt Date: 20210322
  Transmission Date: 20210420
  Serious: No
  Sender: FDA-Public Use
  Company Number: US-GILEAD-2021-0521307

PATIENT
  Sex: Female

DRUGS (12)
  1. PIOGLITAZONE. [Concomitant]
     Active Substance: PIOGLITAZONE
  2. OMEPRAZOLE. [Concomitant]
     Active Substance: OMEPRAZOLE
  3. FENOFIBRATE. [Concomitant]
     Active Substance: FENOFIBRATE
  4. FLUOXETINE [Concomitant]
     Active Substance: FLUOXETINE HYDROCHLORIDE
  5. HYDROCODONE [Concomitant]
     Active Substance: HYDROCODONE
  6. ATORVASTATIN [Concomitant]
     Active Substance: ATORVASTATIN
  7. LEVEMIR [Concomitant]
     Active Substance: INSULIN DETEMIR
  8. LOSARTAN. [Concomitant]
     Active Substance: LOSARTAN
  9. SOMA [Concomitant]
     Active Substance: CARISOPRODOL
  10. MELOXICAM. [Concomitant]
     Active Substance: MELOXICAM
  11. EPCLUSA [Suspect]
     Active Substance: SOFOSBUVIR\VELPATASVIR
     Indication: CHRONIC HEPATITIS C
     Dosage: 1 DOSAGE FORM, QD, EOT JAN, FEB?2021
     Route: 048
     Dates: end: 2021
  12. TRAMADOL. [Concomitant]
     Active Substance: TRAMADOL

REACTIONS (1)
  - Headache [Unknown]
